FAERS Safety Report 6071100-8 (Version None)
Quarter: 2009Q1

REPORT INFORMATION
  Report Type: 
  Country: None (occurrence: None)
  Receive Date: 20090209
  Receipt Date: 20090204
  Transmission Date: 20090719
  Serious: No
  Sender: FDA-Public Use
  Company Number: US-B.I. PHARMACEUTICALS,INC./RIDGEFIELD-2008-BP-18411BP

PATIENT
  Sex: Female

DRUGS (15)
  1. SPIRIVA [Suspect]
     Indication: CHRONIC OBSTRUCTIVE PULMONARY DISEASE
     Dosage: 18MCG
     Route: 055
     Dates: start: 20070901
  2. ADVAIR DISKUS 100/50 [Concomitant]
     Indication: CHRONIC OBSTRUCTIVE PULMONARY DISEASE
     Route: 055
  3. LYRICA [Concomitant]
     Indication: FIBROMYALGIA
     Route: 048
  4. SYNTHROID [Concomitant]
  5. POTASSIUM CHLORIDE [Concomitant]
  6. LASIX [Concomitant]
  7. PAXIL [Concomitant]
  8. FLEXERIL [Concomitant]
  9. ZOCOR [Concomitant]
  10. METFORMIN HCL [Concomitant]
  11. CALCIUM [Concomitant]
  12. ZINC [Concomitant]
  13. COUMADIN [Concomitant]
  14. MAGNESIUM SULFATE [Concomitant]
  15. PRILOSEC [Concomitant]

REACTIONS (2)
  - DYSPNOEA [None]
  - PLEURITIC PAIN [None]
